FAERS Safety Report 6817808-5 (Version None)
Quarter: 2010Q3

REPORT INFORMATION
  Report Type: 
  Country: None (occurrence: None)
  Receive Date: 20100706
  Receipt Date: 20100624
  Transmission Date: 20110219
  Serious: Yes (Death)
  Sender: FDA-Public Use
  Company Number: US-PFIZER INC-2010033779

PATIENT
  Sex: Female

DRUGS (4)
  1. SUTENT [Suspect]
     Indication: LUNG CARCINOMA CELL TYPE UNSPECIFIED STAGE IV
     Dosage: 25 MG, DAILY
     Dates: start: 20091212, end: 20100302
  2. SODIUM PHENYLBUTYRATE [Concomitant]
     Dosage: 3 G, 4X/DAY
  3. TARCEVA [Concomitant]
     Dosage: 150 MG, DAILY
  4. ANASTROZOLE [Concomitant]
     Dosage: 1 MG, DAILY

REACTIONS (2)
  - DISEASE PROGRESSION [None]
  - LUNG NEOPLASM MALIGNANT [None]
